FAERS Safety Report 5661069-X (Version None)
Quarter: 2008Q1

REPORT INFORMATION
  Report Type: 
  Country: None (occurrence: None)
  Receive Date: 20080305
  Receipt Date: 20080226
  Transmission Date: 20080703
  Serious: Yes (Other)
  Sender: FDA-Public Use
  Company Number: 2007336980

PATIENT
  Age: 9 Year
  Sex: Male
  Weight: 32.659 kg

DRUGS (1)
  1. LISTERINE AGENT COOL BLUE (UNSPECIFIED) (NO ACTIVE INGREDIENT) [Suspect]
     Indication: DENTAL DISORDER PROPHYLAXIS
     Dosage: UNKNOWN 4-5 TIMES WEEKLY, ORAL
     Route: 048
     Dates: start: 20060904, end: 20061203

REACTIONS (8)
  - CRYING [None]
  - LIP SWELLING [None]
  - OEDEMA MOUTH [None]
  - ORAL DISCOMFORT [None]
  - ORAL INTAKE REDUCED [None]
  - ORAL PAIN [None]
  - OROPHARYNGEAL BLISTERING [None]
  - WEIGHT DECREASED [None]
